FAERS Safety Report 6239770-9 (Version None)
Quarter: 2009Q2

REPORT INFORMATION
  Report Type: 
  Country: None (occurrence: None)
  Receive Date: 20090623
  Receipt Date: 20071112
  Transmission Date: 20091009
  Serious: Yes (Hospitalization, Other)
  Sender: FDA-Public Use
  Company Number: US-ASTRAZENECA-2006UW27885

PATIENT
  Age: 9495 Day
  Sex: Female
  Weight: 78.9 kg

DRUGS (22)
  1. SEROQUEL [Suspect]
     Indication: BIPOLAR DISORDER
     Dosage: STRENGTH - 25 - 300 MG, DOSE - 25 - 600 MG DAILY
     Route: 048
     Dates: start: 20020903
  2. SEROQUEL [Suspect]
     Indication: DEPRESSION
     Dosage: STRENGTH - 25 - 300 MG, DOSE - 25 - 600 MG DAILY
     Route: 048
     Dates: start: 20020903
  3. SEROQUEL [Suspect]
     Indication: POST-TRAUMATIC STRESS DISORDER
     Dosage: STRENGTH - 25 - 300 MG, DOSE - 25 - 600 MG DAILY
     Route: 048
     Dates: start: 20020903
  4. SEROQUEL [Suspect]
     Route: 048
     Dates: start: 20030101, end: 20060101
  5. SEROQUEL [Suspect]
     Route: 048
     Dates: start: 20030101, end: 20060101
  6. SEROQUEL [Suspect]
     Route: 048
     Dates: start: 20030101, end: 20060101
  7. RISPERDAL [Concomitant]
     Dates: start: 20010101
  8. ZYPREXA [Concomitant]
     Dates: start: 20010101
  9. AMBIEN [Concomitant]
     Indication: INSOMNIA
     Dosage: 10 - 20 MG DAILY
     Route: 048
     Dates: start: 20020903
  10. DIAZEPAM [Concomitant]
     Route: 048
     Dates: start: 20050520
  11. METHYLPHENIDATE HCL [Concomitant]
     Dosage: STRENGTH - 20 MG, DOSE - 20 - 40 MG DAILY
     Route: 048
     Dates: start: 20050520
  12. GABAPENTIN [Concomitant]
     Route: 048
     Dates: start: 20060718
  13. GABAPENTIN [Concomitant]
     Route: 048
     Dates: start: 20060410
  14. ALBUTEROL [Concomitant]
     Dosage: INHALE 2 PUFFS FOUR TIMES A DAY
     Dates: start: 20050105
  15. AMITRIPTYLINE HCL [Concomitant]
     Dates: start: 20050520
  16. WARFARIN SODIUM [Concomitant]
     Dosage: STRENGTH - 1 - 7.5 MG, DOSE - 1 - 7.5 MG DAILY
     Dates: start: 20040922
  17. PROPRANOLOL HYDROCHLORIDE [Concomitant]
     Route: 048
     Dates: start: 20041117
  18. MEDROXYPROGESTERONE [Concomitant]
     Route: 048
     Dates: start: 20030724
  19. TEMAZEPAM [Concomitant]
     Route: 048
     Dates: start: 20030121
  20. STRATTERA [Concomitant]
     Route: 048
     Dates: start: 20041020
  21. METFORMIN HCL [Concomitant]
     Route: 048
     Dates: start: 20041021
  22. DEPAKOTE [Concomitant]
     Route: 048
     Dates: start: 20060914

REACTIONS (6)
  - DEEP VEIN THROMBOSIS [None]
  - DIABETES MELLITUS [None]
  - MUSCULAR WEAKNESS [None]
  - RESORPTION BONE INCREASED [None]
  - THROMBOSIS [None]
  - TYPE 2 DIABETES MELLITUS [None]
